FAERS Safety Report 16037705 (Version 1)
Quarter: 2019Q1

REPORT INFORMATION
  Report Type: Spontaneous
  Country: US (occurrence: US)
  Receive Date: 20190305
  Receipt Date: 20190305
  Transmission Date: 20190418
  Serious: No
  Sender: FDA-Public Use
  Company Number: US-IMPAX LABORATORIES, LLC-2019-IPXL-00013

PATIENT
  Age: 69 Year
  Sex: Female
  Weight: 77 kg

DRUGS (10)
  1. RYTARY [Suspect]
     Active Substance: CARBIDOPA\LEVODOPA
     Indication: PARKINSON^S DISEASE
     Dosage: 3 DOSAGE FORM, TID AT 4 PM
     Route: 048
     Dates: start: 2016
  2. AMANTADINE. [Concomitant]
     Active Substance: AMANTADINE HYDROCHLORIDE
     Indication: PRODUCT USED FOR UNKNOWN INDICATION
     Dosage: UNK, AT BEDTIME
     Route: 065
  3. RYTARY [Suspect]
     Active Substance: CARBIDOPA\LEVODOPA
     Dosage: 10 DOSAGE FORM, DAILY,48.75MG/195 PER DAY
     Route: 048
     Dates: start: 2016
  4. SIMVASTATIN. [Concomitant]
     Active Substance: SIMVASTATIN
     Indication: BLOOD CHOLESTEROL ABNORMAL
     Dosage: 20 MILLIGRAM, DAILY
     Route: 065
  5. LORAZEPAM. [Concomitant]
     Active Substance: LORAZEPAM
     Indication: ANXIETY
     Dosage: 1 DOSAGE FORM, DAILY, 0.5 MG
     Route: 065
  6. RYTARY [Suspect]
     Active Substance: CARBIDOPA\LEVODOPA
     Dosage: 2 DOSAGE FORM AT 8AM, 12PM, 8PM
     Route: 048
     Dates: start: 2016
  7. TRIAMTERENE AND HYDROCHLOROTHIAZID [Concomitant]
     Active Substance: HYDROCHLOROTHIAZIDE\TRIAMTERENE
     Indication: BLOOD PRESSURE ABNORMAL
     Dosage: 1 DOSAGE FORM, DAILY (37.5/25 MG)
     Route: 065
  8. POTASSIUM [Concomitant]
     Active Substance: POTASSIUM
     Indication: PRODUCT USED FOR UNKNOWN INDICATION
     Dosage: 20 MILLIGRAM, BID
     Route: 065
  9. RYTARY [Suspect]
     Active Substance: CARBIDOPA\LEVODOPA
     Dosage: 11 DOSAGE FORM, DAILY (3 CAPSULES TID, 2 CAPSULES AT 8AM, 12PM, 8PM AND 3 CAPSULES AT 4PM)
     Route: 048
     Dates: start: 2016
  10. ENALAPRIL [Concomitant]
     Active Substance: ENALAPRIL
     Indication: BLOOD PRESSURE ABNORMAL
     Dosage: 20 MILLIGRAM, DAILY
     Route: 065

REACTIONS (6)
  - Paraesthesia [Recovering/Resolving]
  - Dyskinesia [Recovering/Resolving]
  - Neck pain [Recovering/Resolving]
  - Sleep disorder [Recovering/Resolving]
  - Tremor [Not Recovered/Not Resolved]
  - Formication [Recovering/Resolving]

NARRATIVE: CASE EVENT DATE: 2018
